FAERS Safety Report 9261142 (Version 3)
Quarter: 2014Q4

REPORT INFORMATION
  Report Type: Report from Study
  Country: JP (occurrence: JP)
  Receive Date: 20130429
  Receipt Date: 20141117
  Transmission Date: 20150529
  Serious: Yes (Hospitalization, Other)
  Sender: FDA-Public Use
  Company Number: PHHY2013JP042104

PATIENT
  Age: 61 Year
  Sex: Female
  Weight: 40 kg

DRUGS (8)
  1. AFINITOR [Suspect]
     Active Substance: EVEROLIMUS
     Indication: PANCREATIC NEUROENDOCRINE TUMOUR
     Dosage: 10 MG, QD
     Route: 048
     Dates: start: 20120409, end: 20120417
  2. AFINITOR [Suspect]
     Active Substance: EVEROLIMUS
     Dosage: 5 MG, QD
     Route: 048
     Dates: start: 20120719
  3. INSULIN [Concomitant]
     Active Substance: INSULIN NOS
     Indication: PRODUCT USED FOR UNKNOWN INDICATION
     Route: 065
  4. AFINITOR [Suspect]
     Active Substance: EVEROLIMUS
     Dosage: 5 MG, QD
     Route: 048
     Dates: start: 20120419, end: 20120614
  5. SANDOSTATIN LAR DEPOT [Suspect]
     Active Substance: OCTREOTIDE ACETATE
     Indication: PANCREATIC NEUROENDOCRINE TUMOUR
     Dosage: 20 MG, /4 WEEKS
     Route: 030
     Dates: start: 20080623
  6. SANDOSTATIN LAR DEPOT [Suspect]
     Active Substance: OCTREOTIDE ACETATE
     Dosage: 30 MG, / 4 WEEKS
     Route: 030
     Dates: start: 20120623
  7. AFINITOR [Suspect]
     Active Substance: EVEROLIMUS
     Dosage: 5 MG, QD
     Route: 048
     Dates: start: 20120623
  8. SANDOSTATIN LAR DEPOT [Suspect]
     Active Substance: OCTREOTIDE ACETATE
     Dosage: 30 MG, /4 WEEKS
     Route: 030
     Dates: start: 20120719

REACTIONS (22)
  - Hepatic enzyme increased [Recovered/Resolved]
  - Metastases to liver [Recovering/Resolving]
  - Fatigue [Unknown]
  - Dry skin [Unknown]
  - Malignant neoplasm progression [Recovering/Resolving]
  - Blood glucose increased [Unknown]
  - Back pain [Recovering/Resolving]
  - Abdominal pain [Recovering/Resolving]
  - Inflammation [Recovered/Resolved]
  - Diabetic ketoacidosis [Recovering/Resolving]
  - Anaphylactoid reaction [Unknown]
  - Erythema [Unknown]
  - Mass [Unknown]
  - Pruritus [Unknown]
  - Type I hypersensitivity [Unknown]
  - Pain [Unknown]
  - Diarrhoea [Unknown]
  - Anaphylactic reaction [Unknown]
  - Flushing [Unknown]
  - Decreased appetite [Recovered/Resolved]
  - Rash [Recovered/Resolved]
  - Dizziness [Recovered/Resolved]

NARRATIVE: CASE EVENT DATE: 20101013
